FAERS Safety Report 5402743-X (Version None)
Quarter: 2007Q3

REPORT INFORMATION
  Report Type: 
  Country: None (occurrence: None)
  Receive Date: 20070801
  Receipt Date: 20070731
  Transmission Date: 20080115
  Serious: Yes (Other)
  Sender: FDA-Public Use
  Company Number: US-PURDUE-USA_2007_0027721

PATIENT
  Sex: Male

DRUGS (5)
  1. OXYCONTIN [Suspect]
     Indication: PHANTOM PAIN
     Dosage: 20 MG, UNK
     Dates: start: 20000711, end: 20001109
  2. LASIX [Concomitant]
     Dosage: 50 MG, DAILY
  3. COZAAR [Concomitant]
     Dosage: 100 MG, UNK
  4. LIPITOR [Concomitant]
     Dosage: 20 MG, UNK
  5. PLAVIX [Concomitant]

REACTIONS (13)
  - ANXIETY [None]
  - CHEST PAIN [None]
  - DEPRESSION [None]
  - DRUG DEPENDENCE [None]
  - DRUG WITHDRAWAL SYNDROME [None]
  - DYSPNOEA [None]
  - HALLUCINATION [None]
  - HYPERHIDROSIS [None]
  - MENTAL DISORDER [None]
  - MOOD SWINGS [None]
  - PHYSICAL ABUSE [None]
  - POSTOPERATIVE WOUND INFECTION [None]
  - SUICIDAL IDEATION [None]
